FAERS Safety Report 7542542-6 (Version None)
Quarter: 2011Q2

REPORT INFORMATION
  Report Type: 
  Country: None (occurrence: None)
  Receive Date: 20110613
  Receipt Date: 20110607
  Transmission Date: 20111010
  Serious: Yes (Other)
  Sender: FDA-Public Use
  Company Number: US-ROCHE-747969

PATIENT
  Sex: Female
  Weight: 59 kg

DRUGS (4)
  1. ACCUTANE [Suspect]
     Indication: ACNE
     Route: 065
     Dates: start: 19950101, end: 19950601
  2. MULTIVITAMIN NOS [Concomitant]
  3. ORAL CONTRACEPTIVES NOS [Concomitant]
  4. ACCUTANE [Suspect]
     Route: 065
     Dates: start: 19961101, end: 19970501

REACTIONS (5)
  - COLONIC POLYP [None]
  - COLITIS ULCERATIVE [None]
  - INFLAMMATORY BOWEL DISEASE [None]
  - RECTAL HAEMORRHAGE [None]
  - ABDOMINAL PAIN [None]
